FAERS Safety Report 4493726-5 (Version None)
Quarter: 2004Q4

REPORT INFORMATION
  Report Type: 
  Country: None (occurrence: None)
  Receive Date: 20041103
  Receipt Date: 20041103
  Transmission Date: 20050328
  Serious: Yes (Death, Hospitalization)
  Sender: FDA-Public Use
  Company Number: None

PATIENT
  Age: 75 Year
  Sex: Female

DRUGS (10)
  1. CAMPATH [Suspect]
     Indication: WALDENSTROM'S MACROGLOBULINAEMIA
     Dosage: 30MG M-W-F INTRAVENOU
     Route: 042
     Dates: start: 20040823, end: 20040927
  2. TAMOXIFEN CITRATE [Concomitant]
  3. DAPSONE [Concomitant]
  4. FAMICLOVIR [Concomitant]
  5. DIPHENHYDRAMINE HCL [Concomitant]
  6. METHYLPREDNISOLONE SOD SUCC [Concomitant]
  7. ACETAMINOPHEN [Concomitant]
  8. HYDROCORTISONE SOD SUCC [Concomitant]
  9. CIMETIDINE [Concomitant]
  10. RANITIDINE HCL [Concomitant]

REACTIONS (6)
  - CYTOMEGALOVIRUS INFECTION [None]
  - HYPOXIA [None]
  - LUNG INFILTRATION [None]
  - PANCYTOPENIA [None]
  - PYREXIA [None]
  - RESPIRATORY FAILURE [None]
